FAERS Safety Report 4754943-X (Version None)
Quarter: 2005Q3

REPORT INFORMATION
  Report Type: 
  Country: None (occurrence: None)
  Receive Date: 20050829
  Receipt Date: 20050204
  Transmission Date: 20060218
  Serious: Yes (Hospitalization, Disabling)
  Sender: FDA-Public Use
  Company Number: US-ROCHE-394835

PATIENT
  Age: 30 Year
  Sex: Female
  Weight: 53.1 kg

DRUGS (5)
  1. ACCUTANE [Suspect]
     Route: 048
     Dates: start: 19990910
  2. ACCUTANE [Suspect]
     Route: 048
  3. ACCUTANE [Suspect]
     Route: 048
     Dates: end: 20000308
  4. BIRTH CONTROL PILLS [Concomitant]
     Route: 048
  5. IBUPROFEN [Concomitant]
     Dates: start: 20040215, end: 20040215

REACTIONS (29)
  - ANAEMIA [None]
  - ANXIETY [None]
  - ARTHRALGIA [None]
  - BLOOD OESTROGEN DECREASED [None]
  - BLOOD TESTOSTERONE DECREASED [None]
  - CERVICAL DYSPLASIA [None]
  - CERVICITIS [None]
  - CHAPPED LIPS [None]
  - COLITIS [None]
  - COLITIS ULCERATIVE [None]
  - COLONIC POLYP [None]
  - CONTACT LENS INTOLERANCE [None]
  - DRUG HYPERSENSITIVITY [None]
  - FATIGUE [None]
  - GASTROINTESTINAL DISORDER [None]
  - HAEMANGIOMA [None]
  - HAEMATOCHEZIA [None]
  - INFLAMMATORY BOWEL DISEASE [None]
  - INTESTINAL HAEMORRHAGE [None]
  - JOINT SPRAIN [None]
  - LIBIDO DECREASED [None]
  - MULTI-ORGAN DISORDER [None]
  - NEPHROLITHIASIS [None]
  - PALPITATIONS [None]
  - PRURITUS [None]
  - SINUSITIS [None]
  - TENOSYNOVITIS [None]
  - URINARY TRACT INFECTION [None]
  - WEIGHT DECREASED [None]
